FAERS Safety Report 10301847 (Version 5)
Quarter: 2015Q1

REPORT INFORMATION
  Report Type: Spontaneous
  Country: US (occurrence: US)
  Receive Date: 20140714
  Receipt Date: 20150120
  Transmission Date: 20150720
  Serious: Yes (Hospitalization, Other)
  Sender: FDA-Public Use
  Company Number: US-GILEAD-2014-0108248

PATIENT
  Age: 31 Year
  Sex: Male

DRUGS (2)
  1. LETAIRIS [Suspect]
     Active Substance: AMBRISENTAN
     Indication: SICKLE CELL ANAEMIA
  2. LETAIRIS [Suspect]
     Active Substance: AMBRISENTAN
     Indication: PULMONARY HYPERTENSION
     Dosage: 10 MG, QD
     Route: 065
     Dates: start: 20140326

REACTIONS (1)
  - Sickle cell anaemia with crisis [Not Recovered/Not Resolved]
